FAERS Safety Report 9845771 (Version 3)
Quarter: 2014Q2

REPORT INFORMATION
  Report Type: Spontaneous
  Country: US (occurrence: US)
  Receive Date: 20140127
  Receipt Date: 20140515
  Transmission Date: 20141212
  Serious: No
  Sender: FDA-Public Use
  Company Number: US-PFIZER INC-2014020133

PATIENT
  Age: 56 Year
  Sex: Male

DRUGS (1)
  1. INLYTA [Suspect]
     Indication: RENAL CANCER METASTATIC
     Dosage: 15 MG, DAILY (5 MG QAM, 10 MG QPM)
     Dates: start: 20131106

REACTIONS (15)
  - Arthralgia [Unknown]
  - Pain in extremity [Unknown]
  - Glossodynia [Unknown]
  - Diarrhoea [Unknown]
  - Hypertension [Unknown]
  - Dry skin [Unknown]
  - Asthenia [Unknown]
  - Dysgeusia [Unknown]
  - Pruritus [Unknown]
  - Gastrooesophageal reflux disease [Unknown]
  - Laryngitis [Unknown]
  - Dysphonia [Unknown]
  - Nasopharyngitis [Unknown]
  - Malaise [Unknown]
  - Abdominal discomfort [Unknown]
